FAERS Safety Report 15607266 (Version 1)
Quarter: 2018Q4

REPORT INFORMATION
  Report Type: Spontaneous
  Country: US (occurrence: US)
  Receive Date: 20181112
  Receipt Date: 20181112
  Transmission Date: 20190205
  Serious: Yes (Hospitalization)
  Sender: FDA-Public Use
  Company Number: None

PATIENT
  Age: 72 Year
  Sex: Male

DRUGS (23)
  1. POT CHLO [Concomitant]
  2. PREDNISONE. [Concomitant]
     Active Substance: PREDNISONE
  3. FUROSEMIDE. [Concomitant]
     Active Substance: FUROSEMIDE
  4. OLANZAPINE. [Concomitant]
     Active Substance: OLANZAPINE
  5. ACCU-CHEK [Concomitant]
  6. FLAXSEED [Concomitant]
     Active Substance: FLAX SEED
  7. FLUTICASONE. [Concomitant]
     Active Substance: FLUTICASONE
  8. METFORMIN [Concomitant]
     Active Substance: METFORMIN HYDROCHLORIDE
  9. SIMVASTATIN. [Concomitant]
     Active Substance: SIMVASTATIN
  10. VITAMIN D [Concomitant]
     Active Substance: CHOLECALCIFEROL
  11. ZOLPIDEM [Concomitant]
     Active Substance: ZOLPIDEM\ZOLPIDEM TARTRATE
  12. SIROLIMUS. [Suspect]
     Active Substance: SIROLIMUS
     Indication: RENAL TRANSPLANT
     Route: 048
     Dates: start: 20181004
  13. CALCITRIOL. [Concomitant]
     Active Substance: CALCITRIOL
  14. CICLOPIROX GEL [Concomitant]
  15. DIVALPROEX [Concomitant]
     Active Substance: DIVALPROEX SODIUM
  16. FASTCLIX [Concomitant]
  17. TAMSULOSIN [Concomitant]
     Active Substance: TAMSULOSIN
  18. SIROLIMUS. [Suspect]
     Active Substance: SIROLIMUS
     Indication: RENAL TRANSPLANT
     Route: 048
     Dates: start: 20170124
  19. TRAMADOL. [Concomitant]
     Active Substance: TRAMADOL
  20. FINASTERIDE. [Concomitant]
     Active Substance: FINASTERIDE
  21. ATENOLOL. [Concomitant]
     Active Substance: ATENOLOL
  22. CELLCEPT [Concomitant]
     Active Substance: MYCOPHENOLATE MOFETIL\MYCOPHENOLATE MOFETIL HYDROCHLORIDE
  23. MYCOPHENOLAT [Concomitant]
     Active Substance: MYCOPHENOLATE MOFETIL

REACTIONS (1)
  - Colonoscopy [None]

NARRATIVE: CASE EVENT DATE: 20181109
